FAERS Safety Report 17500994 (Version 1)
Quarter: 2020Q1

REPORT INFORMATION
  Report Type: Spontaneous
  Country: US (occurrence: US)
  Receive Date: 20200224
  Receipt Date: 20200224
  Transmission Date: 20200409
  Serious: Yes (Life-Threatening)
  Sender: FDA-Public Use
  Company Number: None

PATIENT
  Age: 59 Year
  Sex: Female
  Weight: 62.6 kg

DRUGS (8)
  1. SYNTHROID [Concomitant]
     Active Substance: LEVOTHYROXINE SODIUM
  2. AZILECT [Concomitant]
     Active Substance: RASAGILINE MESYLATE
  3. EMGALITY [Suspect]
     Active Substance: GALCANEZUMAB-GNLM
  4. BACLOFEN. [Concomitant]
     Active Substance: BACLOFEN
  5. CARBDOPA-LEVODOPA [Concomitant]
  6. ATORVASTATIN [Concomitant]
     Active Substance: ATORVASTATIN
  7. BOTOX [Concomitant]
     Active Substance: ONABOTULINUMTOXINA
  8. NITROFURANTOIN. [Concomitant]
     Active Substance: NITROFURANTOIN

REACTIONS (3)
  - Pulmonary pain [None]
  - Chest pain [None]
  - Vasoconstriction [None]

NARRATIVE: CASE EVENT DATE: 20200106
